FAERS Safety Report 8853783 (Version 2)
Quarter: 2012Q4

REPORT INFORMATION
  Report Type: 
  Country: US (occurrence: US)
  Receive Date: 20121023
  Receipt Date: 20121213
  Transmission Date: 20130627
  Serious: Yes (Other)
  Sender: FDA-Public Use
  Company Number: US-ELI_LILLY_AND_COMPANY-US201210005105

PATIENT
  Age: 70 Year
  Sex: Female

DRUGS (3)
  1. CYMBALTA [Suspect]
     Indication: DEPRESSION
     Dosage: 30 mg, qd
     Route: 048
  2. CYMBALTA [Suspect]
     Dosage: 60 mg, qd
  3. COUMADIN [Concomitant]

REACTIONS (1)
  - International normalised ratio increased [Recovered/Resolved]
